FAERS Safety Report 10744197 (Version 2)
Quarter: 2015Q2

REPORT INFORMATION
  Report Type: Spontaneous
  Country: JP (occurrence: JP)
  Receive Date: 20150128
  Receipt Date: 20150409
  Transmission Date: 20150821
  Serious: Yes (Disabling)
  Sender: FDA-Public Use
  Company Number: JP-ROCHE-1367246

PATIENT
  Age: 1 Month
  Sex: Female
  Weight: 1.3 kg

DRUGS (4)
  1. TAMIFLU [Suspect]
     Active Substance: OSELTAMIVIR PHOSPHATE
     Indication: INFLUENZA
     Route: 048
     Dates: start: 20140312, end: 20140312
  2. CARBENIN [Concomitant]
     Active Substance: BETAMIPRON\PANIPENEM
     Indication: INFECTION
     Route: 041
     Dates: start: 20140311, end: 20140314
  3. SOLU-CORTEF [Concomitant]
     Active Substance: HYDROCORTISONE SODIUM SUCCINATE
     Indication: RESPIRATORY DISORDER
     Dosage: 2MGX1/DAY OF 3MGX2/DAY (GRADUAL DECREASE DISCONTINUANCE)?OTHER PURPOSES: FAILURE CIRCULATORY
     Route: 042
     Dates: start: 20140310, end: 20140314
  4. CRITPAN [Concomitant]
     Indication: CIRCULATORY COLLAPSE
     Dosage: DOSAGE IS UNCERTAIN.
     Route: 041

REACTIONS (2)
  - Overdose [Unknown]
  - Periventricular leukomalacia [Recovered/Resolved with Sequelae]

NARRATIVE: CASE EVENT DATE: 20140409
